FAERS Safety Report 8190510-6 (Version None)
Quarter: 2012Q1

REPORT INFORMATION
  Report Type: 
  Country: None (occurrence: None)
  Receive Date: 20120307
  Receipt Date: 20120222
  Transmission Date: 20120608
  Serious: Yes (Hospitalization)
  Sender: FDA-Public Use
  Company Number: JP-INCYTE CORPORATION-2012IN000134

PATIENT

DRUGS (10)
  1. INC424 [Suspect]
     Indication: MYELOFIBROSIS
     Dosage: 40 MG, UNK
     Route: 048
     Dates: start: 20111208, end: 20120127
  2. METHYCOBAL [Concomitant]
     Dosage: UNK
     Dates: start: 20120126, end: 20120210
  3. CELECOXIB [Concomitant]
     Dosage: UNK
     Dates: start: 20120110
  4. FAMVIR [Concomitant]
     Dosage: UNK
     Dates: start: 20120119, end: 20120126
  5. ATELEC [Concomitant]
     Dosage: UNK
     Dates: start: 20080909
  6. KETOPROFEN [Concomitant]
     Dosage: UNK
     Dates: start: 20120110
  7. RABEPRAZOLE SODIUM [Concomitant]
     Dosage: UNK
     Dates: start: 20101028
  8. VOLTAREN [Concomitant]
     Dosage: UNK
     Dates: start: 20120120, end: 20120126
  9. GASMOTIN [Concomitant]
     Dosage: UNK
     Dates: start: 20111111
  10. GENTAMICIN SULFATE [Concomitant]
     Dosage: UNK
     Dates: start: 20120119, end: 20120126

REACTIONS (1)
  - POST HERPETIC NEURALGIA [None]
